FAERS Safety Report 24943642 (Version 1)
Quarter: 2025Q1

REPORT INFORMATION
  Report Type: Spontaneous
  Country: LT (occurrence: LT)
  Receive Date: 20250207
  Receipt Date: 20250207
  Transmission Date: 20250409
  Serious: Yes (Other)
  Sender: SANDOZ
  Company Number: LT-SANDOZ-SDZ2025LT006842

PATIENT
  Sex: Male

DRUGS (1)
  1. ACYCLOVIR [Suspect]
     Active Substance: ACYCLOVIR
     Indication: Viral infection
     Dosage: UNK UNK, QID,35 TAB LT
     Route: 048
     Dates: start: 20241230, end: 20250202

REACTIONS (2)
  - Hepatic pain [Unknown]
  - Renal pain [Unknown]
